FAERS Safety Report 5606102-6 (Version None)
Quarter: 2008Q1

REPORT INFORMATION
  Report Type: 
  Country: None (occurrence: None)
  Receive Date: 20080123
  Receipt Date: 20080123
  Transmission Date: 20080703
  Serious: Yes (Other)
  Sender: FDA-Public Use
  Company Number: None

PATIENT
  Age: 8 Year
  Sex: Male
  Weight: 24.4942 kg

DRUGS (2)
  1. PULMICORT FLEXHALER [Suspect]
     Indication: ASTHMA
     Dosage: 2 INHALATIONS ONCE DAILY OTHER MONTH
     Route: 050
     Dates: start: 20071218, end: 20080122
  2. PULMICORT FLEXHALER [Suspect]
     Indication: COUGH
     Dosage: 2 INHALATIONS ONCE DAILY OTHER MONTH
     Route: 050
     Dates: start: 20071218, end: 20080122

REACTIONS (2)
  - AFFECTIVE DISORDER [None]
  - HEADACHE [None]
